FAERS Safety Report 15023479 (Version 1)
Quarter: 2018Q2

REPORT INFORMATION
  Report Type: Spontaneous
  Country: US (occurrence: US)
  Receive Date: 20180602
  Receipt Date: 20180602
  Transmission Date: 20180711
  Serious: No
  Sender: FDA-Public Use
  Company Number: None

PATIENT
  Age: 32 Year
  Sex: Female
  Weight: 53.55 kg

DRUGS (9)
  1. GABA [Concomitant]
     Active Substance: HOMEOPATHICS
  2. CLA [Concomitant]
  3. BIOSIL [Concomitant]
  4. 5-HTP [Concomitant]
     Active Substance: OXITRIPTAN
  5. FLONASE [Concomitant]
     Active Substance: FLUTICASONE PROPIONATE
  6. EVENING PRIMROSE OIL [Concomitant]
     Active Substance: EVENING PRIMROSE OIL\HERBALS
  7. FISH OIL [Concomitant]
     Active Substance: FISH OIL
  8. SOLGAR NO 7 JOINT SUPPLEMENT [Concomitant]
  9. DEXTROAMPHET SACCHARAT, AMPHET ASPARTATE, DEXTROAMPHET SULFATE AND AMPHET SULFAT [Suspect]
     Active Substance: AMPHETAMINE ASPARTATE\AMPHETAMINE SULFATE\DEXTROAMPHETAMINE SACCHARATE\DEXTROAMPHETAMINE SULFATE
     Indication: ATTENTION DEFICIT/HYPERACTIVITY DISORDER
     Dosage: ?          QUANTITY:60 DF DOSAGE FORM;?
     Route: 048
     Dates: start: 20180529, end: 20180602

REACTIONS (5)
  - Feeling abnormal [None]
  - Lethargy [None]
  - Product substitution issue [None]
  - Nausea [None]
  - Headache [None]

NARRATIVE: CASE EVENT DATE: 20180529
